FAERS Safety Report 5885603-X (Version None)
Quarter: 2008Q3

REPORT INFORMATION
  Report Type: 
  Country: None (occurrence: None)
  Receive Date: 20080916
  Receipt Date: 20080905
  Transmission Date: 20090109
  Serious: Yes (Hospitalization, Other)
  Sender: FDA-Public Use
  Company Number: CA-BAXTER-2008BH004810

PATIENT
  Age: 40 Year
  Sex: Male

DRUGS (1)
  1. GAMMAGARD LIQUID [Suspect]
     Indication: HYPOGAMMAGLOBULINAEMIA
     Route: 042
     Dates: start: 20080409, end: 20080409

REACTIONS (5)
  - APPENDICITIS [None]
  - CHILLS [None]
  - OXYGEN SATURATION DECREASED [None]
  - PSEUDOMONAL SEPSIS [None]
  - TACHYCARDIA [None]
